FAERS Safety Report 20005553 (Version 1)
Quarter: 2021Q4

REPORT INFORMATION
  Report Type: Spontaneous
  Country: US (occurrence: US)
  Receive Date: 20211027
  Receipt Date: 20211027
  Transmission Date: 20220304
  Serious: Yes (Disabling, Other)
  Sender: FDA-Public Use
  Company Number: None

PATIENT
  Age: 39 Year
  Sex: Female
  Weight: 64.41 kg

DRUGS (1)
  1. NEXPLANON [Suspect]
     Active Substance: ETONOGESTREL
     Indication: Contraception

REACTIONS (12)
  - Thrombosis [None]
  - Complex regional pain syndrome [None]
  - Endometriosis [None]
  - Weight increased [None]
  - Insomnia [None]
  - Implant site pain [None]
  - Anxiety [None]
  - Dizziness [None]
  - Syncope [None]
  - Anaemia [None]
  - Impaired work ability [None]
  - Adenomyosis [None]

NARRATIVE: CASE EVENT DATE: 20210820
